FAERS Safety Report 24573153 (Version 1)
Quarter: 2024Q4

REPORT INFORMATION
  Report Type: Report from Study
  Country: GB (occurrence: GB)
  Receive Date: 20241101
  Receipt Date: 20241101
  Transmission Date: 20250115
  Serious: Yes (Congenital Anomaly)
  Sender: TEVA
  Company Number: GB-TEVA-VS-3259691

PATIENT
  Age: 3 Day
  Sex: Female
  Weight: 2.74 kg

DRUGS (3)
  1. EMTRICITABINE\TENOFOVIR DISOPROXIL [Suspect]
     Active Substance: EMTRICITABINE\TENOFOVIR DISOPROXIL
     Dosage: TABLET/CAPSULE
     Route: 064
     Dates: start: 20240509
  2. DARUNAVIR [Suspect]
     Active Substance: DARUNAVIR
     Route: 064
     Dates: start: 20240509
  3. RITONAVIR [Suspect]
     Active Substance: RITONAVIR
     Route: 064
     Dates: start: 20240509

REACTIONS (2)
  - Microcephaly [Unknown]
  - Foetal exposure during pregnancy [Unknown]
